FAERS Safety Report 6692912-3 (Version None)
Quarter: 2010Q2

REPORT INFORMATION
  Report Type: 
  Country: None (occurrence: None)
  Receive Date: 20100419
  Receipt Date: 20100406
  Transmission Date: 20101027
  Serious: Yes (Hospitalization, Other)
  Sender: FDA-Public Use
  Company Number: 2010SCPR000504

PATIENT
  Age: 12 Year
  Sex: Female
  Weight: 35 kg

DRUGS (5)
  1. VALPROIC ACID [Suspect]
     Indication: PARTIAL SEIZURES WITH SECONDARY GENERALISATION
     Dosage: 200MG, BID;
  2. CLOBAZAM (CLOBAZAM) [Concomitant]
  3. CHLORPROMAZINE [Concomitant]
  4. OLANZAPINE [Concomitant]
  5. RISPERIDONE [Concomitant]

REACTIONS (4)
  - ABNORMAL BEHAVIOUR [None]
  - HYPOPHAGIA [None]
  - INSOMNIA [None]
  - RESTLESSNESS [None]
